FAERS Safety Report 9711451 (Version 2)
Quarter: 2014Q1

REPORT INFORMATION
  Report Type: Spontaneous
  Country: CA (occurrence: CA)
  Receive Date: 20131126
  Receipt Date: 20140127
  Transmission Date: 20141002
  Serious: Yes (Hospitalization)
  Sender: FDA-Public Use
  Company Number: CA-NOVOPROD-393074

PATIENT
  Age: 36 Year
  Sex: Female
  Weight: 84 kg

DRUGS (5)
  1. VICTOZA [Suspect]
     Indication: DIABETES MELLITUS INADEQUATE CONTROL
     Dosage: 0.6 MG, QD
     Route: 065
     Dates: start: 20131106
  2. METFORMIN [Suspect]
     Indication: DIABETES MELLITUS INADEQUATE CONTROL
     Dosage: 1 G, BID
     Route: 048
  3. DEXILANT [Concomitant]
  4. COVERSYL PLUS                      /01421201/ [Concomitant]
  5. GLYBERIDE [Concomitant]
     Dosage: 10 MG, BID
     Route: 048

REACTIONS (3)
  - Abdominal pain [Recovering/Resolving]
  - Vomiting [Recovering/Resolving]
  - Eye swelling [Recovering/Resolving]
